FAERS Safety Report 23914435 (Version 1)
Quarter: 2024Q2

REPORT INFORMATION
  Report Type: Report from Study
  Country: FR (occurrence: FR)
  Receive Date: 20240529
  Receipt Date: 20240529
  Transmission Date: 20240715
  Serious: Yes (Other)
  Sender: FDA-Public Use
  Company Number: FR-SUN PHARMACEUTICAL INDUSTRIES LTD-2024R1-448204

PATIENT
  Age: 62 Year
  Sex: Female

DRUGS (1)
  1. BACLOFEN [Suspect]
     Active Substance: BACLOFEN
     Indication: Alcohol use disorder
     Dosage: UNK
     Route: 048

REACTIONS (5)
  - Intentional product misuse [Unknown]
  - Somnolence [Unknown]
  - Psychomotor retardation [Unknown]
  - Amnesia [Unknown]
  - Behaviour disorder [Unknown]
